FAERS Safety Report 18068807 (Version 2)
Quarter: 2021Q1

REPORT INFORMATION
  Report Type: Spontaneous
  Country: US (occurrence: US)
  Receive Date: 20200725
  Receipt Date: 20210318
  Transmission Date: 20210419
  Serious: No
  Sender: FDA-Public Use
  Company Number: US-SHIRE-US202023589

PATIENT
  Age: 19 Year
  Sex: Male
  Weight: 81.63 kg

DRUGS (10)
  1. STERILE WATER [Concomitant]
     Active Substance: WATER
  2. VPRIV [Suspect]
     Active Substance: VELAGLUCERASE ALFA
     Dosage: 5600 INTERNATIONAL UNIT, Q2WEEKS
     Route: 042
     Dates: start: 20160107
  3. VPRIV [Suspect]
     Active Substance: VELAGLUCERASE ALFA
     Indication: GAUCHER^S DISEASE
     Dosage: 26 INTERNATIONAL UNIT
     Route: 042
     Dates: start: 20100418
  4. NORMAL SALINE [Concomitant]
     Active Substance: SODIUM CHLORIDE
  5. LORATADINE. [Concomitant]
     Active Substance: LORATADINE
  6. ACETAMINOPHEN. [Concomitant]
     Active Substance: ACETAMINOPHEN
  7. SOLU?MEDROL [Concomitant]
     Active Substance: METHYLPREDNISOLONE SODIUM SUCCINATE
  8. IBUPROFEN. [Concomitant]
     Active Substance: IBUPROFEN
  9. EPINEPHRINE. [Concomitant]
     Active Substance: EPINEPHRINE
  10. DIPHENHYDRAMINE. [Concomitant]
     Active Substance: DIPHENHYDRAMINE

REACTIONS (2)
  - SARS-CoV-2 test positive [Unknown]
  - Gaucher^s disease [Unknown]

NARRATIVE: CASE EVENT DATE: 20200601
